FAERS Safety Report 22331848 (Version 2)
Quarter: 2023Q2

REPORT INFORMATION
  Report Type: Spontaneous
  Country: US (occurrence: US)
  Receive Date: 20230517
  Receipt Date: 20230628
  Transmission Date: 20230722
  Serious: No
  Sender: FDA-Public Use
  Company Number: US-PFIZER INC-PV202300081125

PATIENT
  Age: 14 Year
  Sex: Male

DRUGS (3)
  1. GENOTROPIN [Suspect]
     Active Substance: SOMATROPIN
     Dosage: 1.4 MG, ALTERNATE DAY
  2. GENOTROPIN [Suspect]
     Active Substance: SOMATROPIN
     Dosage: 1.6 MG, ALTERNATE DAY
  3. GENOTROPIN [Suspect]
     Active Substance: SOMATROPIN
     Dosage: 1.6 MG
     Dates: start: 202305

REACTIONS (3)
  - Drug dose omission by device [Unknown]
  - Device use issue [Unknown]
  - Device delivery system issue [Unknown]
